FAERS Safety Report 22035626 (Version 1)
Quarter: 2023Q1

REPORT INFORMATION
  Report Type: Spontaneous
  Country: BR (occurrence: BR)
  Receive Date: 20230224
  Receipt Date: 20230224
  Transmission Date: 20230418
  Serious: Yes (Other)
  Sender: FDA-Public Use
  Company Number: BR-ORGANON-O2302BRA001990

PATIENT
  Age: 5 Month
  Sex: Male
  Weight: 6.48 kg

DRUGS (2)
  1. DESLORATADINE [Suspect]
     Active Substance: DESLORATADINE
     Indication: Rhinitis
     Dosage: 2 MILLILITER, QD
     Route: 048
     Dates: start: 20230213, end: 20230216
  2. DESLORATADINE [Suspect]
     Active Substance: DESLORATADINE
     Indication: Influenza

REACTIONS (4)
  - Haematochezia [Unknown]
  - Abdominal discomfort [Unknown]
  - Dermatitis allergic [Unknown]
  - Faeces discoloured [Unknown]

NARRATIVE: CASE EVENT DATE: 20230201
